FAERS Safety Report 7198653-0 (Version None)
Quarter: 2010Q4

REPORT INFORMATION
  Report Type: 
  Country: None (occurrence: None)
  Receive Date: 20101227
  Receipt Date: 20101217
  Transmission Date: 20110411
  Serious: Yes (Other)
  Sender: FDA-Public Use
  Company Number: US-ABBOTT-10P-163-0692728-00

PATIENT
  Sex: Female
  Weight: 9.988 kg

DRUGS (5)
  1. KALETRA [Suspect]
     Indication: HIV INFECTION
     Dates: start: 20040101
  2. UNKNOWN HIV MEDICATION [Concomitant]
     Indication: HIV INFECTION
  3. EPIVIR [Concomitant]
     Indication: HIV INFECTION
  4. IONATE [Concomitant]
     Indication: PRODUCT USED FOR UNKNOWN INDICATION
  5. PERIACTIN [Concomitant]
     Indication: APPETITE DISORDER

REACTIONS (2)
  - APHAGIA [None]
  - DECREASED APPETITE [None]
